FAERS Safety Report 11420144 (Version 4)
Quarter: 2015Q3

REPORT INFORMATION
  Report Type: Spontaneous
  Country: US (occurrence: US)
  Receive Date: 20150826
  Receipt Date: 20150921
  Transmission Date: 20151125
  Serious: Yes (Hospitalization, Other)
  Sender: FDA-Public Use
  Company Number: US-GLAXOSMITHKLINE-US2015GSK121227

PATIENT
  Age: 53 Year
  Sex: Female
  Weight: 76.2 kg

DRUGS (2)
  1. GENTAMICIN. [Concomitant]
     Active Substance: GENTAMICIN
  2. MUPIROCIN CALCIUM CREAM [Suspect]
     Active Substance: MUPIROCIN CALCIUM
     Indication: WOUND TREATMENT
     Dosage: 1 DF, QD AND PRN
     Route: 061
     Dates: start: 20150715, end: 20150725

REACTIONS (4)
  - Drug administration error [Recovering/Resolving]
  - Suspected transmission of an infectious agent via product [Unknown]
  - Peritonitis [Recovering/Resolving]
  - Sepsis [Unknown]

NARRATIVE: CASE EVENT DATE: 20150715
